FAERS Safety Report 9739426 (Version 1)
Quarter: 2013Q4

REPORT INFORMATION
  Report Type: Spontaneous
  Country: US (occurrence: US)
  Receive Date: 20131209
  Receipt Date: 20131209
  Transmission Date: 20140711
  Serious: Yes (Other)
  Sender: FDA-Public Use
  Company Number: US-BRISTOL-MYERS SQUIBB COMPANY-19437896

PATIENT
  Sex: Female

DRUGS (1)
  1. IXEMPRA [Suspect]
     Dosage: 2 DOSES
     Route: 042

REACTIONS (3)
  - Dyspnoea [Unknown]
  - Back pain [Unknown]
  - Injection site erythema [Unknown]
